FAERS Safety Report 9652861 (Version 3)
Quarter: 2013Q4

REPORT INFORMATION
  Report Type: Report from Study
  Country: JP (occurrence: JP)
  Receive Date: 20131029
  Receipt Date: 20131218
  Transmission Date: 20140711
  Serious: Yes (Hospitalization, Other)
  Sender: FDA-Public Use
  Company Number: JP-ABBVIE-12P-087-0951854-00

PATIENT
  Age: 63 Year
  Sex: Male
  Weight: 69 kg

DRUGS (21)
  1. HUMIRA [Suspect]
     Indication: RHEUMATOID ARTHRITIS
     Route: 058
     Dates: start: 20120608, end: 20120622
  2. RHEUMATREX [Suspect]
     Indication: RHEUMATOID ARTHRITIS
     Route: 048
     Dates: start: 20110720, end: 20120705
  3. RHEUMATREX [Suspect]
     Dates: start: 20110804
  4. RHEUMATREX [Suspect]
     Dates: start: 20110901
  5. RHEUMATREX [Suspect]
     Dates: start: 20111027
  6. RHEUMATREX [Suspect]
     Dates: start: 20120409
  7. METOLATE [Suspect]
     Indication: PRODUCT USED FOR UNKNOWN INDICATION
  8. METOLATE [Suspect]
     Dates: start: 20120508, end: 20120629
  9. METOLATE [Suspect]
  10. CELECOXIB [Concomitant]
     Indication: RHEUMATOID ARTHRITIS
     Dates: start: 20110929, end: 20120701
  11. PREDNISOLONE [Concomitant]
     Indication: RHEUMATOID ARTHRITIS
     Dosage: DAILY DOSE 1-5 MILLIGRAM :UNIT  1-5 MILLIGRAM
     Route: 048
     Dates: start: 20110725
  12. SALAZOSULFAPYRIDINE [Concomitant]
     Indication: RHEUMATOID ARTHRITIS
     Route: 048
     Dates: start: 20110517, end: 20110715
  13. SALAZOSULFAPYRIDINE [Concomitant]
     Dates: start: 20120409, end: 20120629
  14. METHOTREXATE [Concomitant]
     Indication: RHEUMATOID ARTHRITIS
     Route: 048
     Dates: start: 20120508
  15. ISONIAZID [Concomitant]
     Indication: RHEUMATOID ARTHRITIS
     Route: 048
     Dates: start: 20120608, end: 20120701
  16. ISONIAZID [Concomitant]
     Indication: ANTIBIOTIC PROPHYLAXIS
  17. FOLIC ACID [Concomitant]
     Indication: RHEUMATOID ARTHRITIS
     Dosage: UNIT DOSE: 5-15 MILLIGRAM
     Dates: start: 20110720, end: 20120629
  18. FOLIC ACID [Concomitant]
     Indication: FOLATE DEFICIENCY
  19. FOLIC ACID [Concomitant]
     Indication: PROPHYLAXIS
  20. CANDESARTAN CILEXETIL W/HYDROCHLOROTHIAZIDE [Concomitant]
     Indication: HYPERTENSION
     Route: 048
     Dates: end: 20121212
  21. KETOPROFEN [Concomitant]
     Indication: RHEUMATOID ARTHRITIS
     Route: 062

REACTIONS (4)
  - Arthralgia [Unknown]
  - Arthritis bacterial [Recovered/Resolved]
  - Pyrexia [Unknown]
  - Joint swelling [Unknown]
